FAERS Safety Report 14562880 (Version 1)
Quarter: 2018Q1

REPORT INFORMATION
  Report Type: Other
  Country: FR (occurrence: FR)
  Receive Date: 20180222
  Receipt Date: 20180222
  Transmission Date: 20180509
  Serious: Yes (Hospitalization, Other)
  Sender: FDA-Public Use
  Company Number: FR-SEATTLE GENETICS-2018SGN00337

PATIENT
  Age: 53 Year
  Sex: Male
  Weight: 56 kg

DRUGS (4)
  1. VINBLASTINE SULFATE. [Suspect]
     Active Substance: VINBLASTINE SULFATE
     Indication: HODGKIN^S DISEASE
     Route: 042
  2. DOXORUBICIN HYDROCHLORIDE. [Suspect]
     Active Substance: DOXORUBICIN HYDROCHLORIDE
     Indication: HODGKIN^S DISEASE
     Dosage: 42 MG, UNK
     Route: 042
  3. ADCETRIS [Suspect]
     Active Substance: BRENTUXIMAB VEDOTIN
     Indication: HODGKIN^S DISEASE
     Dosage: 67 MG, UNK
     Route: 042
  4. DACARBAZINE. [Suspect]
     Active Substance: DACARBAZINE
     Indication: HODGKIN^S DISEASE
     Dosage: 630 MG, UNK
     Route: 042

REACTIONS (3)
  - Respiratory distress [Not Recovered/Not Resolved]
  - Cardiomyopathy acute [Not Recovered/Not Resolved]
  - Ventricular hypokinesia [Not Recovered/Not Resolved]

NARRATIVE: CASE EVENT DATE: 20180129
